FAERS Safety Report 24106454 (Version 1)
Quarter: 2024Q3

REPORT INFORMATION
  Report Type: Report from Study
  Country: IN (occurrence: IN)
  Receive Date: 20240717
  Receipt Date: 20240717
  Transmission Date: 20241017
  Serious: Yes (Other)
  Sender: SANDOZ
  Company Number: IN-002147023-NVSC2023IN274308

PATIENT
  Sex: Female

DRUGS (10)
  1. MYFORTIC [Suspect]
     Active Substance: MYCOPHENOLATE SODIUM
     Indication: Renal transplant
     Dosage: 3 DF, QD 2 - 0 -1
     Route: 048
  2. MYFORTIC [Suspect]
     Active Substance: MYCOPHENOLATE SODIUM
     Dosage: 360 MG, BID
     Route: 048
  3. TACROLIMUS [Suspect]
     Active Substance: TACROLIMUS
     Dosage: 0.5 MG, QD EVENING
     Route: 048
  4. TACROLIMUS [Suspect]
     Active Substance: TACROLIMUS
     Indication: Renal transplant
     Dosage: 1 MG, QD MORNING
     Route: 048
  5. Candid [Concomitant]
     Indication: Product used for unknown indication
     Dosage: 20 DRP, TID, AFTER FOOD - DAILY - 4 WEEKS
     Route: 065
  6. CILNIDIPINE [Concomitant]
     Active Substance: CILNIDIPINE
     Indication: Hypertension
     Dosage: 1 DF  AFTER FOOD - SOS (F BP MORE THAN 130/90),
     Route: 065
  7. ESOZ-D [Concomitant]
     Indication: Product used for unknown indication
     Dosage: 1 DF, QD  BEFORE BREAKFAST
     Route: 065
  8. FOLVITE [Concomitant]
     Active Substance: FOLIC ACID
     Indication: Product used for unknown indication
     Dosage: 5 MG, QD, AFTER BREAKFAST
     Route: 065
  9. Septran [Concomitant]
     Indication: Product used for unknown indication
     Dosage: 1 DOSAGE FORM, QD, AFTER DINNER
     Route: 065
  10. PREDNISOLONE [Concomitant]
     Active Substance: PREDNISOLONE
     Indication: Product used for unknown indication
     Dosage: 5 MG, QD  AFTER BREAKFAST - DAILY
     Route: 065

REACTIONS (3)
  - IgA nephropathy [Unknown]
  - Chronic allograft nephropathy [Unknown]
  - Laboratory test abnormal [Unknown]
